FAERS Safety Report 22242154 (Version 5)
Quarter: 2023Q2

REPORT INFORMATION
  Report Type: Spontaneous
  Country: US (occurrence: US)
  Receive Date: 20230421
  Receipt Date: 20230513
  Transmission Date: 20230721
  Serious: Yes (Death, Hospitalization, Other)
  Sender: FDA-Public Use
  Company Number: US-009507513-2304USA007021

PATIENT
  Sex: Male

DRUGS (10)
  1. KEYTRUDA [Suspect]
     Active Substance: PEMBROLIZUMAB
     Indication: Bladder cancer
     Dosage: UNK, Q3W
     Route: 042
     Dates: start: 20230224, end: 20230224
  2. KEYTRUDA [Suspect]
     Active Substance: PEMBROLIZUMAB
     Dosage: UNK, Q3W
     Route: 042
     Dates: start: 20230320, end: 20230320
  3. HUMULINE [Concomitant]
  4. HUMALOG [Concomitant]
     Active Substance: INSULIN LISPRO
  5. OMEPRAZOLE [Concomitant]
     Active Substance: OMEPRAZOLE
  6. DILTIZEM [Concomitant]
  7. TAMSULOSIN [Concomitant]
     Active Substance: TAMSULOSIN
  8. LEVOTHYROXINE [Concomitant]
     Active Substance: LEVOTHYROXINE
  9. LISINOPRIL [Concomitant]
     Active Substance: LISINOPRIL
  10. INSULIN NOS [Concomitant]
     Active Substance: INSULIN NOS
     Route: 041

REACTIONS (9)
  - Pneumonia [Fatal]
  - Toxicity to various agents [Fatal]
  - Hepatotoxicity [Not Recovered/Not Resolved]
  - Thyroid hormones increased [Unknown]
  - Muscular weakness [Unknown]
  - Pneumothorax [Unknown]
  - Bladder cancer recurrent [Unknown]
  - Blood glucose increased [Unknown]
  - Inappropriate schedule of product administration [Unknown]

NARRATIVE: CASE EVENT DATE: 20230101
